FAERS Safety Report 14537414 (Version 2)
Quarter: 2018Q1

REPORT INFORMATION
  Report Type: Report from Study
  Country: US (occurrence: US)
  Receive Date: 20180215
  Receipt Date: 20180315
  Transmission Date: 20180509
  Serious: Yes (Hospitalization)
  Sender: FDA-Public Use
  Company Number: US-ACTELION-A-US2018-167364

PATIENT
  Age: 6 Month
  Sex: Female

DRUGS (6)
  1. FAMOTIDINE. [Concomitant]
     Active Substance: FAMOTIDINE
  2. MULTIVITAMINES WITH IRON [Concomitant]
     Route: 048
  3. TRACLEER [Suspect]
     Active Substance: BOSENTAN
     Indication: PULMONARY HYPERTENSION
     Dosage: 12.5 MG, BID
     Route: 048
     Dates: start: 20171208
  4. FUROSEMIDE. [Concomitant]
     Active Substance: FUROSEMIDE
  5. NEO-SYNEPHRINE [Concomitant]
     Active Substance: PHENYLEPHRINE HYDROCHLORIDE
     Route: 045
  6. ACETAMINOPHEN. [Concomitant]
     Active Substance: ACETAMINOPHEN

REACTIONS (4)
  - Epistaxis [Unknown]
  - Atrial septal defect repair [Unknown]
  - Nasal dryness [Unknown]
  - Patent ductus arteriosus repair [Unknown]

NARRATIVE: CASE EVENT DATE: 20180115
